FAERS Safety Report 6695564 (Version 7)
Quarter: 2014Q4

REPORT INFORMATION
  Report Type: Spontaneous
  Country: US (occurrence: US)
  Receive Date: 20080710
  Receipt Date: 20141215
  Transmission Date: 20150529
  Serious: Yes (Hospitalization, Other)
  Sender: FDA-Public Use
  Company Number: US-ROCHE-552232

PATIENT
  Age: 13 Year
  Sex: Male
  Weight: 59.4 kg

DRUGS (1)
  1. ACCUTANE [Suspect]
     Active Substance: ISOTRETINOIN
     Indication: ACNE
     Route: 048
     Dates: start: 199802, end: 199804

REACTIONS (8)
  - Inflammatory bowel disease [Unknown]
  - Cheilitis [Unknown]
  - Nephrolithiasis [Unknown]
  - Musculoskeletal stiffness [Unknown]
  - Hydronephrosis [Unknown]
  - Colitis ulcerative [Unknown]
  - Iron deficiency anaemia [Not Recovered/Not Resolved]
  - Clostridium difficile infection [Not Recovered/Not Resolved]

NARRATIVE: CASE EVENT DATE: 199803
